FAERS Safety Report 7041704-4 (Version None)
Quarter: 2010Q4

REPORT INFORMATION
  Report Type: 
  Country: None (occurrence: None)
  Receive Date: 20101013
  Receipt Date: 20100809
  Transmission Date: 20110411
  Serious: No
  Sender: FDA-Public Use
  Company Number: US-ASTRAZENECA-2010SE37178

PATIENT
  Age: 59 Year
  Sex: Male
  Weight: 108.9 kg

DRUGS (2)
  1. SYMBICORT [Suspect]
     Indication: CHRONIC OBSTRUCTIVE PULMONARY DISEASE
     Dosage: 160 MCG
     Route: 055
  2. VENTOLIN [Concomitant]

REACTIONS (3)
  - COUGH [None]
  - DRUG DOSE OMISSION [None]
  - DYSPNOEA [None]
